FAERS Safety Report 18895510 (Version 2)
Quarter: 2021Q1

REPORT INFORMATION
  Report Type: Report from Study
  Country: None (occurrence: US)
  Receive Date: 20210216
  Receipt Date: 20210216
  Transmission Date: 20210420
  Serious: Yes (Other)
  Sender: FDA-Public Use
  Company Number: US-ABBVIE-21K-163-3737890-00

PATIENT
  Age: 63 Year
  Sex: Female
  Weight: 88.53 kg

DRUGS (3)
  1. HUMIRA [Suspect]
     Active Substance: ADALIMUMAB
     Indication: RHEUMATOID ARTHRITIS
     Route: 058
     Dates: start: 201812, end: 20210103
  2. METHOTREXATE. [Concomitant]
     Active Substance: METHOTREXATE
     Indication: RHEUMATOID ARTHRITIS
  3. MODERNA COVID?19 VACCINE [Concomitant]
     Active Substance: CX-024414
     Indication: COVID-19 IMMUNISATION
     Dosage: MODERNA
     Route: 030
     Dates: start: 202102, end: 202102

REACTIONS (11)
  - Benign lymph node neoplasm [Recovered/Resolved]
  - Nodule [Recovered/Resolved]
  - Suture related complication [Unknown]
  - Headache [Recovered/Resolved]
  - Fatigue [Recovering/Resolving]
  - Infection [Unknown]
  - Malignant melanoma [Recovering/Resolving]
  - Ingrown hair [Recovered/Resolved]
  - Procedural pain [Recovering/Resolving]
  - Musculoskeletal disorder [Unknown]
  - Stress [Recovered/Resolved]

NARRATIVE: CASE EVENT DATE: 202007
